FAERS Safety Report 16461303 (Version 3)
Quarter: 2019Q3

REPORT INFORMATION
  Report Type: Spontaneous
  Country: US (occurrence: US)
  Receive Date: 20190620
  Receipt Date: 20190805
  Transmission Date: 20191004
  Serious: No
  Sender: FDA-Public Use
  Company Number: PHEH2019US025687

PATIENT
  Sex: Male

DRUGS (1)
  1. TRAVATAN Z [Suspect]
     Active Substance: TRAVOPROST
     Indication: PRODUCT USED FOR UNKNOWN INDICATION
     Dosage: UNK DRP, QD
     Route: 047
     Dates: start: 20090926

REACTIONS (2)
  - Product administration error [Unknown]
  - Product quality issue [Unknown]
